FAERS Safety Report 19575261 (Version 1)
Quarter: 2021Q3

REPORT INFORMATION
  Report Type: Report from Study
  Country: US (occurrence: US)
  Receive Date: 20210719
  Receipt Date: 20210719
  Transmission Date: 20211014
  Serious: No
  Sender: FDA-Public Use
  Company Number: US-VANDA PHARMACEUTICALS, INC-2021TASUS004991

PATIENT
  Sex: Female

DRUGS (1)
  1. HETLIOZ [Suspect]
     Active Substance: TASIMELTEON
     Indication: SMITH-MAGENIS SYNDROME
     Dosage: 20 MILLIGRAM, ONCE A DAY
     Dates: start: 20210507

REACTIONS (2)
  - Irritability [Unknown]
  - Hangover [Unknown]
